FAERS Safety Report 9921424 (Version 2)
Quarter: 2014Q2

REPORT INFORMATION
  Report Type: Report from Study
  Country: AR (occurrence: AR)
  Receive Date: 20140225
  Receipt Date: 20140403
  Transmission Date: 20141212
  Serious: Yes (Other)
  Sender: FDA-Public Use
  Company Number: PHHY2014AR022386

PATIENT
  Age: 81 Year
  Sex: Female

DRUGS (3)
  1. DIOVAN D [Suspect]
     Indication: HYPERTENSION
     Dosage: 1 DF (160/12.5MG) DAILY
     Route: 048
  2. DIOVAN D [Suspect]
     Indication: CARDIAC DISORDER
  3. DIOVAN D [Suspect]
     Indication: OFF LABEL USE

REACTIONS (3)
  - Breast cancer [Recovered/Resolved]
  - Venous occlusion [Not Recovered/Not Resolved]
  - Coronary artery occlusion [Not Recovered/Not Resolved]
